FAERS Safety Report 8354002-3 (Version None)
Quarter: 2012Q2

REPORT INFORMATION
  Report Type: 
  Country: None (occurrence: None)
  Receive Date: 20120511
  Receipt Date: 20120507
  Transmission Date: 20120825
  Serious: Yes (Hospitalization)
  Sender: FDA-Public Use
  Company Number: US-BAYER-2012-045867

PATIENT
  Age: 38 Year
  Sex: Female
  Weight: 72.562 kg

DRUGS (5)
  1. HYDROCODONE BITARTRATE [Concomitant]
  2. YASMIN [Suspect]
     Dosage: UNK
     Dates: start: 20070101, end: 20080901
  3. NEXIUM [Concomitant]
  4. DROSPIRENONE AND ETHINYL ESTRADIOL [Suspect]
     Dosage: UNK
     Dates: start: 20080801, end: 20081001
  5. AMBIEN [Concomitant]

REACTIONS (2)
  - DEEP VEIN THROMBOSIS [None]
  - PULMONARY EMBOLISM [None]
